FAERS Safety Report 7878480-9 (Version None)
Quarter: 2011Q4

REPORT INFORMATION
  Report Type: 
  Country: None (occurrence: None)
  Receive Date: 20111028
  Receipt Date: 20111017
  Transmission Date: 20120403
  Serious: Yes (Other)
  Sender: FDA-Public Use
  Company Number: 2011MA015416

PATIENT
  Age: 10 Year
  Sex: Male
  Weight: 31.7518 kg

DRUGS (1)
  1. PROPRANOLOL HCL [Suspect]
     Indication: MIGRAINE
     Dosage: 80 MG;QD;PO
     Route: 048

REACTIONS (4)
  - PARASOMNIA [None]
  - HOMICIDAL IDEATION [None]
  - HALLUCINATION, AUDITORY [None]
  - ABNORMAL DREAMS [None]
